FAERS Safety Report 22178587 (Version 4)
Quarter: 2023Q2

REPORT INFORMATION
  Report Type: Report from Study
  Country: CA (occurrence: CA)
  Receive Date: 20230405
  Receipt Date: 20230622
  Transmission Date: 20230721
  Serious: Yes (Other)
  Sender: FDA-Public Use
  Company Number: CA-JAZZ PHARMACEUTICALS-2023-CA-007044

PATIENT
  Age: 80 Year
  Sex: Male
  Weight: 87.4 kg

DRUGS (5)
  1. LURBINECTEDIN [Suspect]
     Active Substance: LURBINECTEDIN
     Dosage: 3.2 MILLIGRAM/SQ. METER Q3 WEEKS
     Route: 042
     Dates: start: 20221115
  2. BREO ELLIPTA [Concomitant]
     Active Substance: FLUTICASONE FUROATE\VILANTEROL TRIFENATATE
     Dosage: QD 25-100CG
     Route: 042
     Dates: start: 2019
  3. DILAUDID [Concomitant]
     Active Substance: HYDROMORPHONE HYDROCHLORIDE
     Dosage: 0.5 MILLIGRAM PRN
     Route: 048
     Dates: start: 20220718
  4. DILAUDID [Concomitant]
     Active Substance: HYDROMORPHONE HYDROCHLORIDE
     Dosage: 0.5 MILLIGRAM PRN
     Route: 048
     Dates: start: 20220718
  5. RELAXA [BROMISOVAL;CARBROMAL] [Concomitant]
     Dosage: 17 GRAM PRN
     Route: 048
     Dates: start: 202207

REACTIONS (1)
  - Injection site reaction [Recovered/Resolved]

NARRATIVE: CASE EVENT DATE: 20221205
